FAERS Safety Report 4639911-0 (Version None)
Quarter: 2005Q2

REPORT INFORMATION
  Report Type: 
  Country: None (occurrence: None)
  Receive Date: 20050328
  Receipt Date: 20050110
  Transmission Date: 20051028
  Serious: No
  Sender: FDA-Public Use
  Company Number: USA050187969

PATIENT
  Age: 11 Year
  Sex: Male
  Weight: 34 kg

DRUGS (3)
  1. STRATTERA [Suspect]
     Indication: ATTENTION DEFICIT/HYPERACTIVITY DISORDER
     Dosage: 40 MG DAY
     Dates: start: 20030701
  2. CONCERTA [Concomitant]
  3. CLARITIN [Concomitant]

REACTIONS (2)
  - DECREASED APPETITE [None]
  - EPISTAXIS [None]
